FAERS Safety Report 6748820-2 (Version None)
Quarter: 2010Q2

REPORT INFORMATION
  Report Type: 
  Country: None (occurrence: None)
  Receive Date: 20100601
  Receipt Date: 20100524
  Transmission Date: 20101027
  Serious: Yes (Other)
  Sender: FDA-Public Use
  Company Number: PHHY2010CH28261

PATIENT
  Sex: Female

DRUGS (3)
  1. TRILEPTAL [Suspect]
     Indication: EPILEPSY
     Dosage: 300 MG, DAILY
  2. TRILEPTAL [Suspect]
     Dosage: 300 MG, DAILY
     Dates: start: 20091101
  3. TRILEPTAL [Suspect]
     Dosage: 300 MG, DAILY
     Dates: start: 20100410

REACTIONS (8)
  - CIRCULATORY COLLAPSE [None]
  - DEPRESSED MOOD [None]
  - DISTURBANCE IN ATTENTION [None]
  - DYSPEPSIA [None]
  - FALL [None]
  - MEMORY IMPAIRMENT [None]
  - RASH [None]
  - SLEEP DISORDER [None]
